FAERS Safety Report 16737557 (Version 1)
Quarter: 2019Q3

REPORT INFORMATION
  Report Type: Spontaneous
  Country: JP (occurrence: JP)
  Receive Date: 20190823
  Receipt Date: 20190823
  Transmission Date: 20191005
  Serious: Yes (Other)
  Sender: FDA-Public Use
  Company Number: JP-COVIS PHARMA B.V.-2019COV00200

PATIENT
  Sex: Female

DRUGS (4)
  1. SOTALOL. [Suspect]
     Active Substance: SOTALOL
     Dosage: 240 MG, 1X/DAY (IN 2 DIVIDED DOSES)
     Route: 065
  2. DIGOXIN. [Concomitant]
     Active Substance: DIGOXIN
     Dosage: 0.375 MG, 1X/DAY
     Route: 065
  3. DIGOXIN. [Concomitant]
     Active Substance: DIGOXIN
     Route: 065
  4. SOTALOL. [Suspect]
     Active Substance: SOTALOL
     Indication: TACHYCARDIA FOETAL
     Dosage: 160 MG, 1X/DAY (IN 3 DIVIDED DOSES)
     Route: 065

REACTIONS (2)
  - Foetal death [Recovered/Resolved]
  - Exposure during pregnancy [Recovered/Resolved]
